FAERS Safety Report 8297992-X (Version None)
Quarter: 2012Q2

REPORT INFORMATION
  Report Type: 
  Country: None (occurrence: None)
  Receive Date: 20120419
  Receipt Date: 20120409
  Transmission Date: 20120825
  Serious: Yes (Other)
  Sender: FDA-Public Use
  Company Number: JP-ASTRAZENECA-2012SE24622

PATIENT
  Sex: Male

DRUGS (2)
  1. SEROQUEL [Suspect]
     Indication: ANXIETY DISORDER
     Route: 048
  2. DEPAS [Concomitant]

REACTIONS (3)
  - DYSKINESIA [None]
  - OFF LABEL USE [None]
  - DYSTONIA [None]
